FAERS Safety Report 14072465 (Version 5)
Quarter: 2018Q1

REPORT INFORMATION
  Report Type: Report from Study
  Country: None (occurrence: NZ)
  Receive Date: 20171011
  Receipt Date: 20180329
  Transmission Date: 20180508
  Serious: Yes (Hospitalization)
  Sender: FDA-Public Use
  Company Number: NZ-ABBVIE-17K-118-2124948-00

PATIENT
  Age: 38 Year
  Sex: Male
  Weight: 60 kg

DRUGS (10)
  1. HUMIRA [Suspect]
     Active Substance: ADALIMUMAB
     Route: 058
     Dates: start: 20170731
  2. MERCAPTOPURINE. [Concomitant]
     Active Substance: MERCAPTOPURINE
     Indication: CROHN^S DISEASE
     Dosage: 6 DAYS DOSE -OMIT SUNDAYS
     Dates: start: 20150401
  3. ALLOPURINOL. [Concomitant]
     Active Substance: ALLOPURINOL
     Indication: CROHN^S DISEASE
     Dates: start: 20150715
  4. FOSAMAX [Concomitant]
     Active Substance: ALENDRONATE SODIUM
     Indication: OSTEOPOROSIS
     Dates: start: 20090527
  5. PENTASA [Concomitant]
     Active Substance: MESALAMINE
     Indication: CROHN^S DISEASE
     Dosage: 2 SACHETS
     Dates: start: 20151111
  6. TACROLIMUS. [Concomitant]
     Active Substance: TACROLIMUS
     Indication: PROPHYLAXIS AGAINST TRANSPLANT REJECTION
     Dosage: 2.5MG, MANE?2MG, NOCTE
     Dates: start: 20090527
  7. MIDAZOLAM [Concomitant]
     Active Substance: MIDAZOLAM HYDROCHLORIDE
     Indication: PRODUCT USED FOR UNKNOWN INDICATION
     Route: 042
  8. HUMIRA [Suspect]
     Active Substance: ADALIMUMAB
     Indication: CROHN^S DISEASE
     Route: 058
     Dates: start: 20170419, end: 2017
  9. FENTANYL. [Concomitant]
     Active Substance: FENTANYL
     Indication: PRODUCT USED FOR UNKNOWN INDICATION
     Route: 042
  10. CHOLECALCIFEROL [Concomitant]
     Active Substance: CHOLECALCIFEROL
     Indication: OSTEOPOROSIS
     Dates: start: 20170115

REACTIONS (25)
  - Hypophagia [Unknown]
  - Dry mouth [Unknown]
  - Diarrhoea [Recovering/Resolving]
  - Feeling cold [Unknown]
  - Nausea [Unknown]
  - Fatigue [Recovering/Resolving]
  - Abdominal distension [Not Recovered/Not Resolved]
  - Oral candidiasis [Unknown]
  - Chills [Unknown]
  - Oropharyngeal pain [Unknown]
  - Neuralgia [Not Recovered/Not Resolved]
  - Orthostatic hypotension [Unknown]
  - Crohn^s disease [Recovering/Resolving]
  - Defaecation urgency [Not Recovered/Not Resolved]
  - Stress [Unknown]
  - Proctitis [Unknown]
  - Frequent bowel movements [Recovering/Resolving]
  - Scar [Not Recovered/Not Resolved]
  - Abdominal pain lower [Unknown]
  - Cough [Unknown]
  - Flatulence [Not Recovered/Not Resolved]
  - Urine output decreased [Unknown]
  - Suprapubic pain [Unknown]
  - Colitis [Unknown]
  - Abdominal pain [Recovering/Resolving]

NARRATIVE: CASE EVENT DATE: 2017
